FAERS Safety Report 21068780 (Version 4)
Quarter: 2022Q4

REPORT INFORMATION
  Report Type: Report from Study
  Country: US (occurrence: None)
  Receive Date: 20220712
  Receipt Date: 20221013
  Transmission Date: 20230113
  Serious: Yes (Hospitalization)
  Sender: FDA-Public Use
  Company Number: US-ROCHE-3133768

PATIENT
  Age: 3 Year
  Sex: Male
  Weight: 12 kg

DRUGS (28)
  1. TOCILIZUMAB [Suspect]
     Active Substance: TOCILIZUMAB
     Indication: COVID-19
     Dosage: DOSE AND DATE OF  LAST STUDY DRUG ADMIN PRIOR AE :144 MG, 10/JUN/2022 2:51 PM?DOSE AND DATE OF  LAST
     Route: 041
     Dates: start: 20220610
  2. SYNTHROID [Concomitant]
     Active Substance: LEVOTHYROXINE SODIUM
     Indication: Hypothyroidism
     Dosage: 25 OTHER
     Route: 048
     Dates: end: 20220609
  3. SYNTHROID [Concomitant]
     Active Substance: LEVOTHYROXINE SODIUM
     Dosage: 25 OTHER- DOSE
     Route: 048
     Dates: start: 20220617
  4. SYNTHROID [Concomitant]
     Active Substance: LEVOTHYROXINE SODIUM
     Dosage: DOSE - 37.5 OTHER
     Route: 048
     Dates: start: 20220609, end: 20220616
  5. PRILOSEC [Concomitant]
     Active Substance: OMEPRAZOLE MAGNESIUM
     Indication: Gastrooesophageal reflux disease
     Dosage: MEDICATION DOSE- 10 OTHER
     Route: 048
  6. CLONAZEPAM [Concomitant]
     Active Substance: CLONAZEPAM
     Indication: Seizure
     Route: 048
  7. ALBUTEROL [Concomitant]
     Active Substance: ALBUTEROL
     Indication: Asthma
     Dosage: MEDICATION DOSE- 180 OTHER
  8. PULMICORT TURBUHALER [Concomitant]
     Active Substance: BUDESONIDE
     Indication: Asthma
  9. LACOSAMIDE [Concomitant]
     Active Substance: LACOSAMIDE
     Route: 048
  10. DEXAMETHASONE [Concomitant]
     Active Substance: DEXAMETHASONE
     Indication: Inflammation
     Route: 048
     Dates: start: 20220609, end: 20220614
  11. ENOXAPARIN [Concomitant]
     Active Substance: ENOXAPARIN
     Route: 058
     Dates: start: 20220609, end: 20220615
  12. OMEPRAZOLE [Concomitant]
     Active Substance: OMEPRAZOLE
     Indication: Gastrooesophageal reflux disease
     Route: 048
     Dates: start: 20220609, end: 20220616
  13. OXCARBAZEPINE [Concomitant]
     Active Substance: OXCARBAZEPINE
     Route: 048
  14. OXCARBAZEPINE [Concomitant]
     Active Substance: OXCARBAZEPINE
     Route: 048
     Dates: start: 20220609, end: 20220615
  15. REMDESIVIR [Concomitant]
     Active Substance: REMDESIVIR
     Indication: COVID-19
     Route: 042
     Dates: start: 20220609, end: 20220609
  16. REMDESIVIR [Concomitant]
     Active Substance: REMDESIVIR
     Route: 042
     Dates: start: 20220610, end: 20220613
  17. FLUTICASONE [Concomitant]
     Active Substance: FLUTICASONE
     Indication: Asthma
     Dosage: MEDICATION DOSE 110 OTHER
     Dates: start: 20220609, end: 20220615
  18. SODIUM CHLORIDE [Concomitant]
     Active Substance: SODIUM CHLORIDE
     Route: 041
     Dates: start: 20220609, end: 20220609
  19. DEXTROSE [Concomitant]
     Active Substance: DEXTROSE
     Route: 042
     Dates: start: 20220609, end: 20220609
  20. ACETAMINOPHEN [Concomitant]
     Active Substance: ACETAMINOPHEN
     Indication: Pain
     Route: 048
     Dates: start: 20220610, end: 20220612
  21. ACETAMINOPHEN [Concomitant]
     Active Substance: ACETAMINOPHEN
     Indication: Pyrexia
     Route: 042
     Dates: start: 20220609, end: 20220610
  22. AMPICILLIN [Concomitant]
     Active Substance: AMPICILLIN
     Route: 042
     Dates: start: 20220610, end: 20220615
  23. IBUPROFEN [Concomitant]
     Active Substance: IBUPROFEN
     Indication: Pain
     Route: 048
     Dates: start: 20220610, end: 20220614
  24. CEFTRIAXONE [Concomitant]
     Active Substance: CEFTRIAXONE
     Route: 042
     Dates: start: 20220609, end: 20220610
  25. DIASTAT [Concomitant]
     Active Substance: DIAZEPAM
     Route: 054
  26. KEPPRA [Concomitant]
     Active Substance: LEVETIRACETAM
     Route: 048
  27. OXYGEN [Concomitant]
     Active Substance: OXYGEN
     Dates: start: 20220609, end: 20220611
  28. OXYGEN [Concomitant]
     Active Substance: OXYGEN
     Dosage: O2 SUPPLEMENTATION - NASAL CANULAE (NOT HIGH FLOW)
     Dates: start: 20220611, end: 20220613

REACTIONS (1)
  - Device dislocation [Recovered/Resolved]

NARRATIVE: CASE EVENT DATE: 20220703
